FAERS Safety Report 6344378-0 (Version None)
Quarter: 2009Q3

REPORT INFORMATION
  Report Type: 
  Country: None (occurrence: None)
  Receive Date: 20090821
  Receipt Date: 20090505
  Transmission Date: 20100115
  Serious: No
  Sender: FDA-Public Use
  Company Number: 8045815

PATIENT
  Age: 56 Year
  Sex: Female
  Weight: 107 kg

DRUGS (15)
  1. CIMZIA [Suspect]
     Indication: CROHN'S DISEASE
     Dosage: 400 MG SC
     Route: 058
     Dates: start: 20090301
  2. COUMADIN [Concomitant]
  3. ASPIRIN [Concomitant]
  4. TOPROL-XL [Concomitant]
  5. VERAPAMIL [Concomitant]
  6. LIPITOR [Concomitant]
  7. LASIX [Concomitant]
  8. NEXIUM [Concomitant]
  9. MERCAPTOPURINE [Concomitant]
  10. COZAAR [Concomitant]
  11. LANTUS [Concomitant]
  12. INSULIN NOVO [Concomitant]
  13. HALDOL [Concomitant]
  14. REMERON [Concomitant]
  15. EFFEXOR [Concomitant]

REACTIONS (2)
  - CONTUSION [None]
  - INFECTION [None]
